FAERS Safety Report 15654398 (Version 1)
Quarter: 2018Q4

REPORT INFORMATION
  Report Type: Report from Study
  Country: None (occurrence: CL)
  Receive Date: 20181126
  Receipt Date: 20181126
  Transmission Date: 20190205
  Serious: Yes (Hospitalization, Other)
  Sender: FDA-Public Use
  Company Number: CL-ABBVIE-18K-034-2456858-00

PATIENT
  Age: 35 Year
  Sex: Female

DRUGS (3)
  1. HUMIRA [Suspect]
     Active Substance: ADALIMUMAB
     Indication: CROHN^S DISEASE
     Route: 058
  2. HUMIRA [Suspect]
     Active Substance: ADALIMUMAB
     Route: 058
     Dates: start: 2018
  3. HUMIRA [Suspect]
     Active Substance: ADALIMUMAB
     Indication: CROHN^S DISEASE
     Route: 058
     Dates: start: 20170802, end: 2018

REACTIONS (6)
  - Rubber sensitivity [Unknown]
  - Anal fistula [Not Recovered/Not Resolved]
  - Drug resistance [Unknown]
  - Drug ineffective [Unknown]
  - Anal abscess [Recovering/Resolving]
  - Injury associated with device [Recovered/Resolved]

NARRATIVE: CASE EVENT DATE: 2018
